FAERS Safety Report 6570496-8 (Version None)
Quarter: 2010Q1

REPORT INFORMATION
  Report Type: 
  Country: None (occurrence: None)
  Receive Date: 20100204
  Receipt Date: 20091014
  Transmission Date: 20100710
  Serious: Yes (Other)
  Sender: FDA-Public Use
  Company Number: A0811794A

PATIENT
  Sex: Female
  Weight: 110 kg

DRUGS (2)
  1. ARIXTRA [Suspect]
     Indication: DEEP VEIN THROMBOSIS
     Dosage: 10MG UNKNOWN
     Route: 058
  2. WARFARIN [Concomitant]

REACTIONS (1)
  - CATHETER SITE HAEMORRHAGE [None]
